FAERS Safety Report 12236152 (Version 2)
Quarter: 2016Q2

REPORT INFORMATION
  Report Type: Report from Study
  Country: CH (occurrence: CH)
  Receive Date: 20160404
  Receipt Date: 20160425
  Transmission Date: 20160815
  Serious: Yes (Hospitalization)
  Sender: FDA-Public Use
  Company Number: CH-ABBVIE-16P-151-1588378-00

PATIENT
  Age: 75 Year
  Sex: Male

DRUGS (1)
  1. DUODOPA [Suspect]
     Active Substance: CARBIDOPA\LEVODOPA
     Indication: PARKINSON^S DISEASE
     Dosage: MD: 2.9 ML CD: 1.5ML/H ED: 0.8ML 16 H THERAPY
     Route: 050
     Dates: start: 20140113

REACTIONS (6)
  - Device dislocation [Unknown]
  - Small intestinal stenosis [Recovered/Resolved]
  - Stoma site erythema [Unknown]
  - Excessive granulation tissue [Unknown]
  - Device issue [Unknown]
  - Fixed bowel loop [Recovered/Resolved]

NARRATIVE: CASE EVENT DATE: 201603
